FAERS Safety Report 12483821 (Version 1)
Quarter: 2016Q2

REPORT INFORMATION
  Report Type: Report from Study
  Country: CN (occurrence: CN)
  Receive Date: 20160621
  Receipt Date: 20160621
  Transmission Date: 20160815
  Serious: Yes (Death, Other)
  Sender: FDA-Public Use
  Company Number: CN-ROCHE-1779002

PATIENT

DRUGS (3)
  1. ALTEPLASE [Suspect]
     Active Substance: ALTEPLASE
     Indication: CEREBRAL ARTERY EMBOLISM
     Dosage: DOSE: 10% OF TOTAL DOSE INITIALLY INTRAVENOUSLY INJECTED OVER THE COURSE OF 1 MINUTE, FOLLOWED BY TH
     Route: 042
  2. CLOPIDOGREL [Suspect]
     Active Substance: CLOPIDOGREL BISULFATE
     Indication: CEREBRAL ARTERY EMBOLISM
     Route: 050
  3. ASPIRIN. [Suspect]
     Active Substance: ASPIRIN
     Indication: CEREBRAL ARTERY EMBOLISM
     Route: 050

REACTIONS (4)
  - Cerebral haemorrhage [Unknown]
  - Death [Fatal]
  - Encephalopathy [Unknown]
  - Brain herniation [Unknown]
